FAERS Safety Report 8619741 (Version 3)
Quarter: 2013Q1

REPORT INFORMATION
  Report Type: Spontaneous
  Country: US (occurrence: US)
  Receive Date: 20120618
  Receipt Date: 20130109
  Transmission Date: 20140127
  Serious: Yes (Other)
  Sender: FDA-Public Use
  Company Number: US-ROCHE-1078159

PATIENT
  Sex: Female
  Weight: 57.66 kg

DRUGS (5)
  1. ACCUTANE [Suspect]
     Indication: ACNE
     Route: 048
     Dates: start: 20000622
  2. ACCUTANE [Suspect]
     Route: 048
     Dates: start: 20001221, end: 20010614
  3. ZITHROMAX [Concomitant]
  4. DERMATOL [Concomitant]
  5. TRIAZ [Concomitant]

REACTIONS (7)
  - Crohn^s disease [Unknown]
  - Inflammatory bowel disease [Unknown]
  - Depression [Unknown]
  - Injury [Unknown]
  - Colitis ulcerative [Unknown]
  - Mental disorder [Unknown]
  - Irritable bowel syndrome [Unknown]
